FAERS Safety Report 21383887 (Version 1)
Quarter: 2022Q3

REPORT INFORMATION
  Report Type: Spontaneous
  Country: DE (occurrence: DE)
  Receive Date: 20220928
  Receipt Date: 20220928
  Transmission Date: 20221027
  Serious: Yes (Hospitalization)
  Sender: FDA-Public Use
  Company Number: DE-ADRED-05706-01

PATIENT
  Age: 56 Year
  Sex: Female
  Weight: 61 kg

DRUGS (2)
  1. TAMOXIFEN [Suspect]
     Active Substance: TAMOXIFEN
     Indication: Product used for unknown indication
     Dosage: 1 DOSAGE FORMS DAILY; 20 MG, 0-0-1-0, TABLET
  2. LEVOTHYROXINE SODIUM [Concomitant]
     Active Substance: LEVOTHYROXINE SODIUM
     Indication: Product used for unknown indication
     Dosage: 1 DOSAGE FORMS DAILY; 125 UG, 1-0-0-0, TABLET

REACTIONS (4)
  - Headache [Unknown]
  - Ischaemia [Unknown]
  - Muscular weakness [Unknown]
  - Dysarthria [Unknown]
